FAERS Safety Report 23085365 (Version 5)
Quarter: 2025Q4

REPORT INFORMATION
  Report Type: Spontaneous
  Country: US (occurrence: US)
  Receive Date: 20231019
  Receipt Date: 20251107
  Transmission Date: 20260117
  Serious: Yes (Other)
  Sender: PFIZER
  Company Number: US-PFIZER INC-202300331909

PATIENT
  Age: 80 Year
  Sex: Female

DRUGS (5)
  1. IBRANCE [Suspect]
     Active Substance: PALBOCICLIB
     Indication: Neoplasm malignant
     Dosage: DAILY FOR 21 DAYS, THEN OFF FOR 7 DAYS; WITH FOOD/TAKE 1 CAP DAILY FOR 21 DAYS IN A 28 DAY CYCLE
     Route: 048
     Dates: start: 20180430
  2. IBRANCE [Suspect]
     Active Substance: PALBOCICLIB
     Indication: Breast cancer metastatic
  3. ANASTROZOLE [Concomitant]
     Active Substance: ANASTROZOLE
     Indication: Breast cancer metastatic
     Dosage: UNK
     Dates: start: 20180430
  4. CYKLOKAPRON [Concomitant]
     Active Substance: TRANEXAMIC ACID
     Dosage: UNK, SINGLE (ONCE)
     Route: 042
     Dates: end: 20231011
  5. LYRICA [Concomitant]
     Active Substance: PREGABALIN
     Dosage: 75 MG
     Route: 048
     Dates: start: 20231011

REACTIONS (6)
  - Metastases to skin [Unknown]
  - Metastases to liver [Unknown]
  - Shoulder arthroplasty [Unknown]
  - Weight decreased [Unknown]
  - Malaise [Unknown]
  - Increased upper airway secretion [Unknown]
